FAERS Safety Report 4423318-5 (Version None)
Quarter: 2004Q3

REPORT INFORMATION
  Report Type: 
  Country: None (occurrence: None)
  Receive Date: 20040811
  Receipt Date: 20040802
  Transmission Date: 20050211
  Serious: Yes (Other)
  Sender: FDA-Public Use
  Company Number: 374816

PATIENT
  Age: 67 Year
  Sex: Male

DRUGS (3)
  1. DIMITONE [Suspect]
     Indication: HYPERTENSION
     Dosage: 25MG PER DAY
     Route: 048
     Dates: start: 20040224, end: 20040527
  2. BETNOVAT [Concomitant]
     Indication: PSORIASIS
  3. CALCIPOTRIOL [Concomitant]
     Indication: PSORIASIS

REACTIONS (1)
  - PSORIASIS [None]
